FAERS Safety Report 7406194-8 (Version None)
Quarter: 2011Q2

REPORT INFORMATION
  Report Type: 
  Country: None (occurrence: None)
  Receive Date: 20110411
  Receipt Date: 20110329
  Transmission Date: 20111010
  Serious: Yes (Other)
  Sender: FDA-Public Use
  Company Number: US-JNJFOC-20110310102

PATIENT
  Age: 54 Year
  Sex: Female

DRUGS (2)
  1. KETOCONAZOLE [Suspect]
     Indication: PROSTATE CANCER
     Route: 065
  2. SIMVASTATIN [Interacting]
     Indication: PROSTATE CANCER
     Route: 065

REACTIONS (3)
  - OFF LABEL USE [None]
  - RHABDOMYOLYSIS [None]
  - DRUG INTERACTION [None]
